FAERS Safety Report 9220212 (Version 3)
Quarter: 2013Q4

REPORT INFORMATION
  Report Type: Spontaneous
  Country: US (occurrence: US)
  Receive Date: 20130409
  Receipt Date: 20131112
  Transmission Date: 20140711
  Serious: Yes (Hospitalization)
  Sender: FDA-Public Use
  Company Number: US-PFIZER INC-2013107555

PATIENT
  Age: 77 Year
  Sex: Female
  Weight: 74.83 kg

DRUGS (5)
  1. REVATIO [Suspect]
     Indication: CHRONIC OBSTRUCTIVE PULMONARY DISEASE
     Dosage: 20 MG, 3X/DAY
     Route: 048
     Dates: start: 2011
  2. REVATIO [Suspect]
     Indication: ASTHMA
  3. REVATIO [Suspect]
     Indication: PULMONARY HYPERTENSION
  4. TEKTURNA [Concomitant]
     Indication: HYPERTENSION
     Dosage: 150 MG, 1X/DAY
  5. SINGULAIR [Concomitant]
     Dosage: UNK

REACTIONS (3)
  - Bronchitis [Recovering/Resolving]
  - Nasopharyngitis [Recovering/Resolving]
  - Off label use [Unknown]
